FAERS Safety Report 8188249-6 (Version None)
Quarter: 2012Q1

REPORT INFORMATION
  Report Type: 
  Country: None (occurrence: None)
  Receive Date: 20120306
  Receipt Date: 20120301
  Transmission Date: 20120608
  Serious: No
  Sender: FDA-Public Use
  Company Number: US-PFIZER INC-2012055823

PATIENT
  Sex: Female
  Weight: 83.9 kg

DRUGS (6)
  1. ZOLOFT [Suspect]
     Dosage: UNK
     Route: 048
  2. LOVASTATIN [Concomitant]
     Indication: BLOOD CHOLESTEROL INCREASED
     Dosage: 20 MG, 1X/DAY
     Route: 048
  3. LEVOTHYROXINE [Concomitant]
     Indication: HYPOTHYROIDISM
     Dosage: UNK, 1X/DAY
     Route: 048
  4. VALIUM [Concomitant]
     Dosage: UNK
  5. ZOLOFT [Suspect]
     Indication: DEPRESSION
     Dosage: 25 MG, 1X/DAY
     Route: 048
     Dates: start: 19980101
  6. METFORMIN [Concomitant]
     Indication: DIABETES MELLITUS
     Dosage: UNK

REACTIONS (5)
  - RESTLESS LEGS SYNDROME [None]
  - ANXIETY [None]
  - MALAISE [None]
  - HEART RATE INCREASED [None]
  - DRUG INEFFECTIVE [None]
